FAERS Safety Report 4700044-6 (Version None)
Quarter: 2005Q2

REPORT INFORMATION
  Report Type: 
  Country: None (occurrence: None)
  Receive Date: 20050627
  Receipt Date: 20050621
  Transmission Date: 20051028
  Serious: Yes (Hospitalization)
  Sender: FDA-Public Use
  Company Number: US-GLAXOSMITHKLINE-A0563610A

PATIENT
  Age: 90 Year
  Sex: Male

DRUGS (8)
  1. FLOVENT [Suspect]
     Indication: ASTHMA
     Dosage: 2PUFF TWICE PER DAY
     Route: 055
     Dates: start: 20050501
  2. FLOVENT [Suspect]
     Dosage: 2PUFF TWICE PER DAY
     Route: 055
  3. DETROL [Concomitant]
  4. LASIX [Concomitant]
  5. DIGOXIN [Concomitant]
  6. PRILOSEC [Concomitant]
  7. POTASSIUM SUPPLEMENT [Concomitant]
  8. SODIUM [Concomitant]

REACTIONS (4)
  - CONTUSION [None]
  - PANCREATITIS ACUTE [None]
  - PRURITUS [None]
  - RASH [None]
